FAERS Safety Report 5364288-5 (Version None)
Quarter: 2007Q2

REPORT INFORMATION
  Report Type: 
  Country: None (occurrence: None)
  Receive Date: 20070618
  Receipt Date: 20070604
  Transmission Date: 20071010
  Serious: Yes (Other)
  Sender: FDA-Public Use
  Company Number: 2007VX001579

PATIENT
  Age: 20 Year
  Sex: Female
  Weight: 75 kg

DRUGS (6)
  1. FLURAZEPAM HYDROCHLORIDE [Suspect]
     Dates: start: 20070601, end: 20070601
  2. ACETAMINOPHEN [Suspect]
     Dosage: 2000 MG; TOTAL
     Dates: start: 20060601, end: 20060601
  3. PENICILLIN [Suspect]
     Dates: start: 20070601, end: 20070601
  4. DICLOFENAC (DICLOFENAC) [Suspect]
     Dates: start: 20070601, end: 20070601
  5. ALCOHOL (ETHANOL) [Suspect]
     Dates: start: 20070601, end: 20070601
  6. ZOPICLONE (ZOPICLONE) [Suspect]
     Dosage: 1485 MG; TOTAL
     Dates: start: 20070601, end: 20070601

REACTIONS (3)
  - INTENTIONAL OVERDOSE [None]
  - RESTLESSNESS [None]
  - SUICIDAL IDEATION [None]
